FAERS Safety Report 10572131 (Version 1)
Quarter: 2014Q4

REPORT INFORMATION
  Report Type: Spontaneous
  Country: TR (occurrence: TR)
  Receive Date: 20141107
  Receipt Date: 20141107
  Transmission Date: 20150529
  Serious: Yes (Other)
  Sender: FDA-Public Use
  Company Number: TR-ASTRAZENECA-2014SE83812

PATIENT
  Age: 21532 Day
  Sex: Male
  Weight: 65 kg

DRUGS (3)
  1. ERAXIS [Suspect]
     Active Substance: ANIDULAFUNGIN
     Indication: FUNGAEMIA
     Route: 042
     Dates: start: 20140913, end: 20140913
  2. MERONEM [Suspect]
     Active Substance: MEROPENEM
     Route: 042
     Dates: start: 2014
  3. VORICONAZOLE. [Concomitant]
     Active Substance: VORICONAZOLE
     Indication: PULMONARY MYCOSIS

REACTIONS (2)
  - Tachypnoea [Recovered/Resolved]
  - Erythema [Recovered/Resolved]

NARRATIVE: CASE EVENT DATE: 20140913
